FAERS Safety Report 13269876 (Version 1)
Quarter: 2017Q1

REPORT INFORMATION
  Report Type: Spontaneous
  Country: US (occurrence: US)
  Receive Date: 20170224
  Receipt Date: 20170224
  Transmission Date: 20170428
  Serious: No
  Sender: FDA-Public Use
  Company Number: US-TAIHO ONCOLOGY INC-EU-2017-00319

PATIENT
  Age: 49 Year
  Sex: Male

DRUGS (5)
  1. OXYCODONE [Concomitant]
     Active Substance: OXYCODONE
     Dosage: NI
  2. LONSURF [Suspect]
     Active Substance: TIPIRACIL HYDROCHLORIDE\TRIFLURIDINE
     Indication: COLON CANCER
     Route: 048
     Dates: start: 20170118
  3. PAROXETINE. [Concomitant]
     Active Substance: PAROXETINE
     Dosage: NI
  4. GABAPENTIN. [Concomitant]
     Active Substance: GABAPENTIN
     Dosage: NI
  5. MEGESTROL [Concomitant]
     Active Substance: MEGESTROL
     Dosage: NI

REACTIONS (1)
  - Fatigue [Unknown]

NARRATIVE: CASE EVENT DATE: 201701
